FAERS Safety Report 24737601 (Version 1)
Quarter: 2024Q4

REPORT INFORMATION
  Report Type: Spontaneous
  Country: CN (occurrence: CN)
  Receive Date: 20241216
  Receipt Date: 20241216
  Transmission Date: 20250115
  Serious: Yes (Other)
  Sender: ROCHE
  Company Number: CN-ROCHE-10000152433

PATIENT
  Age: 69 Year
  Sex: Male
  Weight: 61 kg

DRUGS (4)
  1. RITUXIMAB [Suspect]
     Active Substance: RITUXIMAB
     Indication: Guillain-Barre syndrome
     Route: 042
     Dates: start: 20241017, end: 20241017
  2. DIPHENHYDRAMINE [Concomitant]
     Active Substance: DIPHENHYDRAMINE
  3. METOPROLOL [Concomitant]
     Active Substance: METOPROLOL
  4. METHYLPREDNISOLONE SODIUM SUCCINATE [Concomitant]
     Active Substance: METHYLPREDNISOLONE SODIUM SUCCINATE
     Route: 042

REACTIONS (8)
  - Palpitations [Recovering/Resolving]
  - Tremor [Unknown]
  - Sputum increased [Unknown]
  - Blood glucose increased [Unknown]
  - Heart rate increased [Unknown]
  - Cyanosis [Recovering/Resolving]
  - Erythema [Recovering/Resolving]
  - Off label use [Unknown]

NARRATIVE: CASE EVENT DATE: 20241017
